FAERS Safety Report 5597872-4 (Version None)
Quarter: 2007Q4

REPORT INFORMATION
  Report Type: 
  Country: None (occurrence: None)
  Receive Date: 20071221
  Receipt Date: 20070930
  Transmission Date: 20080405
  Serious: Yes (Other)
  Sender: FDA-Public Use
  Company Number: US200710000913

PATIENT
  Age: 63 Year
  Sex: Male

DRUGS (2)
  1. HUMALOG [Suspect]
     Dates: start: 19970101
  2. HUMULIN N [Suspect]
     Dates: start: 19970101

REACTIONS (2)
  - BLOOD GLUCOSE DECREASED [None]
  - CONVULSION [None]
